FAERS Safety Report 5507590-6 (Version None)
Quarter: 2007Q4

REPORT INFORMATION
  Report Type: 
  Country: None (occurrence: None)
  Receive Date: 20071102
  Receipt Date: 20071023
  Transmission Date: 20080405
  Serious: Yes (Death, Other)
  Sender: FDA-Public Use
  Company Number: MC200700678

PATIENT
  Age: 85 Year
  Sex: Female

DRUGS (1)
  1. ANGIOMAX [Suspect]
     Indication: PERCUTANEOUS CORONARY INTERVENTION
     Dosage: 0.75 MG/KG, BOLUS, IV BOLUS, 1.75 MG/KG, HR, INTRAVENOUS
     Route: 040

REACTIONS (4)
  - CARDIO-RESPIRATORY ARREST [None]
  - HYPOTENSION [None]
  - INCISION SITE HAEMORRHAGE [None]
  - INTRA-ABDOMINAL HAEMORRHAGE [None]
